FAERS Safety Report 12884804 (Version 1)
Quarter: 2016Q4

REPORT INFORMATION
  Report Type: Spontaneous
  Country: US (occurrence: US)
  Receive Date: 20161026
  Receipt Date: 20161026
  Transmission Date: 20170207
  Serious: No
  Sender: FDA-Public Use
  Company Number: US-BAYER-2016-205216

PATIENT
  Age: 82 Year
  Sex: Female
  Weight: 70.3 kg

DRUGS (4)
  1. ALEVE [Suspect]
     Active Substance: NAPROXEN SODIUM
     Indication: HYPOAESTHESIA
  2. TYLENOL EXTRA STRENGTH [Concomitant]
     Active Substance: ACETAMINOPHEN
     Dosage: UNK
  3. ALEVE [Suspect]
     Active Substance: NAPROXEN SODIUM
     Indication: PAIN
     Dosage: 1 DF, OM
     Route: 048
     Dates: start: 201507, end: 20161024
  4. ALEVE [Suspect]
     Active Substance: NAPROXEN SODIUM
     Indication: PARAESTHESIA

REACTIONS (2)
  - Product use issue [Unknown]
  - Rash [Not Recovered/Not Resolved]

NARRATIVE: CASE EVENT DATE: 201507
